FAERS Safety Report 4504040-3 (Version None)
Quarter: 2004Q3

REPORT INFORMATION
  Report Type: 
  Country: None (occurrence: None)
  Receive Date: 20040927
  Receipt Date: 20040706
  Transmission Date: 20050211
  Serious: No
  Sender: FDA-Public Use
  Company Number: USA040671267

PATIENT
  Age: 21 Year
  Sex: Male
  Weight: 105 kg

DRUGS (2)
  1. STRATTERA [Suspect]
     Indication: ATTENTION DEFICIT/HYPERACTIVITY DISORDER
     Dosage: 80 MG DAY
     Dates: start: 20040621, end: 20040626
  2. PAXIL [Concomitant]

REACTIONS (3)
  - DIFFICULTY IN WALKING [None]
  - DIZZINESS [None]
  - RASH [None]
